FAERS Safety Report 7222584-0 (Version None)
Quarter: 2010Q4

REPORT INFORMATION
  Report Type: 
  Country: None (occurrence: None)
  Receive Date: 20101227
  Receipt Date: 20101212
  Transmission Date: 20110411
  Serious: Yes (Life-Threatening)
  Sender: FDA-Public Use
  Company Number: OMX-2010-00149

PATIENT
  Age: 45 Year
  Sex: Female

DRUGS (7)
  1. QUIXIL [Suspect]
     Indication: POST PROCEDURAL HAEMORRHAGE
  2. PRESSURE REGULATOR (SPRAY (NOT INHALATION) [Suspect]
  3. THIOPENTAL SODIUM [Concomitant]
  4. FENTANYL [Concomitant]
  5. ROCURONIUM BROMIDE [Concomitant]
  6. ISOFLURANE [Concomitant]
  7. BUPIVACAINE HCL [Concomitant]

REACTIONS (2)
  - AIR EMBOLISM [None]
  - EMBOLISM ARTERIAL [None]
